FAERS Safety Report 14231881 (Version 3)
Quarter: 2018Q2

REPORT INFORMATION
  Report Type: Spontaneous
  Country: BR (occurrence: BR)
  Receive Date: 20171128
  Receipt Date: 20180604
  Transmission Date: 20180711
  Serious: Yes (Other)
  Sender: FDA-Public Use
  Company Number: BR-ELI_LILLY_AND_COMPANY-BR201609011451

PATIENT
  Age: 77 Year
  Sex: Female
  Weight: 75 kg

DRUGS (12)
  1. ALLOPURINOL. [Concomitant]
     Active Substance: ALLOPURINOL
     Indication: PRODUCT USED FOR UNKNOWN INDICATION
  2. ESCITALOPRAM [Concomitant]
     Active Substance: ESCITALOPRAM OXALATE
     Indication: PRODUCT USED FOR UNKNOWN INDICATION
  3. ESOMEPRAZOLE [Concomitant]
     Active Substance: ESOMEPRAZOLE
     Indication: PRODUCT USED FOR UNKNOWN INDICATION
  4. PROPAFENONE HYDROCHLORIDE. [Concomitant]
     Active Substance: PROPAFENONE HYDROCHLORIDE
     Indication: PRODUCT USED FOR UNKNOWN INDICATION
  5. NEOVITE LUTEIN [Concomitant]
     Indication: PRODUCT USED FOR UNKNOWN INDICATION
  6. FUROSEMIDE. [Concomitant]
     Active Substance: FUROSEMIDE
     Indication: PRODUCT USED FOR UNKNOWN INDICATION
  7. SPIRONOLACTONE. [Concomitant]
     Active Substance: SPIRONOLACTONE
     Indication: PRODUCT USED FOR UNKNOWN INDICATION
  8. LEVOTHYROXINE. [Concomitant]
     Active Substance: LEVOTHYROXINE
     Indication: PRODUCT USED FOR UNKNOWN INDICATION
  9. MAREVAN [Suspect]
     Active Substance: WARFARIN SODIUM
     Indication: PRODUCT USED FOR UNKNOWN INDICATION
     Dosage: UNK, UNKNOWN
     Route: 065
     Dates: end: 2015
  10. SIMVASTATIN. [Concomitant]
     Active Substance: SIMVASTATIN
     Indication: PRODUCT USED FOR UNKNOWN INDICATION
  11. EFFIENT [Suspect]
     Active Substance: PRASUGREL HYDROCHLORIDE
     Indication: ANTIPLATELET THERAPY
     Dosage: 10 MG, UNKNOWN
     Route: 065
     Dates: start: 201601, end: 20160920
  12. EFFIENT [Suspect]
     Active Substance: PRASUGREL HYDROCHLORIDE
     Dosage: 10 MG, DAILY
     Route: 048
     Dates: end: 20180222

REACTIONS (12)
  - Syncope [Recovered/Resolved]
  - Anaemia [Recovered/Resolved]
  - Contraindicated product administered [Recovered/Resolved]
  - Haematochezia [Recovered/Resolved]
  - Skin haemorrhage [Recovered/Resolved]
  - Contraindicated product administered [Recovered/Resolved]
  - Drug dose omission [Recovered/Resolved]
  - Venous occlusion [Not Recovered/Not Resolved]
  - Hypersensitivity [Recovered/Resolved]
  - Pruritus [Recovering/Resolving]
  - Intentional product misuse [Recovered/Resolved]
  - Solar dermatitis [Not Recovered/Not Resolved]

NARRATIVE: CASE EVENT DATE: 201601
